FAERS Safety Report 10379061 (Version 5)
Quarter: 2014Q4

REPORT INFORMATION
  Report Type: Spontaneous
  Country: JP (occurrence: None)
  Receive Date: 20140808
  Receipt Date: 20141027
  Transmission Date: 20150528
  Serious: Yes (Death, Hospitalization, Other)
  Sender: FDA-Public Use
  Company Number: ADR-2014-01371

PATIENT
  Age: 66 Year
  Sex: Male
  Weight: 39 kg

DRUGS (1)
  1. GABALON [Suspect]
     Active Substance: BACLOFEN
     Indication: SYRINGOMYELIA
     Dosage: 19 MCG/DAY; SEE B5

REACTIONS (11)
  - Condition aggravated [None]
  - Pneumonia aspiration [None]
  - Muscle atrophy [None]
  - Dysphagia [None]
  - Oedema [None]
  - Gastrointestinal perforation [None]
  - Bedridden [None]
  - Peritonitis [None]
  - Mobility decreased [None]
  - Chills [None]
  - Shock [None]
